FAERS Safety Report 11842392 (Version 1)
Quarter: 2015Q4

REPORT INFORMATION
  Report Type: Spontaneous
  Country: US (occurrence: None)
  Receive Date: 20151216
  Receipt Date: 20151216
  Transmission Date: 20160305
  Serious: No
  Sender: FDA-Public Use
  Company Number: None

PATIENT
  Age: 61 Year
  Sex: Female
  Weight: 56.7 kg

DRUGS (5)
  1. BONIVA [Concomitant]
     Active Substance: IBANDRONATE SODIUM
  2. VIT. D [Concomitant]
  3. MVI [Concomitant]
     Active Substance: VITAMINS
  4. SYNTHROID [Concomitant]
     Active Substance: LEVOTHYROXINE SODIUM
  5. PICATO [Suspect]
     Active Substance: INGENOL MEBUTATE
     Indication: ACTINIC KERATOSIS
     Dosage: AT BEDTIME, 2 UNIT DOSE TUBES
     Route: 061
     Dates: start: 20151026, end: 20151026

REACTIONS (7)
  - Application site vesicles [None]
  - Incorrect dose administered [None]
  - Application site exfoliation [None]
  - Application site erythema [None]
  - Drug dispensing error [None]
  - Drug prescribing error [None]
  - Application site pain [None]

NARRATIVE: CASE EVENT DATE: 20151026
